FAERS Safety Report 14564251 (Version 1)
Quarter: 2018Q1

REPORT INFORMATION
  Report Type: Spontaneous
  Country: ZA (occurrence: ZA)
  Receive Date: 20180222
  Receipt Date: 20180222
  Transmission Date: 20180509
  Serious: Yes (Other)
  Sender: FDA-Public Use
  Company Number: ZA-SA-2018SA034751

PATIENT
  Age: 46 Year
  Sex: Female

DRUGS (6)
  1. NEURONTIN [Suspect]
     Active Substance: GABAPENTIN
     Indication: POLYNEUROPATHY
     Route: 065
  2. POLYGAM [Suspect]
     Active Substance: HUMAN IMMUNOGLOBULIN G
     Indication: POLYNEUROPATHY
     Route: 065
  3. METHOTREXATE. [Suspect]
     Active Substance: METHOTREXATE
     Route: 065
     Dates: start: 2014
  4. ARAVA [Suspect]
     Active Substance: LEFLUNOMIDE
     Route: 048
     Dates: start: 201606
  5. CHLOROQUINE. [Suspect]
     Active Substance: CHLOROQUINE
     Route: 048
     Dates: start: 201604
  6. TRYPTANOL [Suspect]
     Active Substance: AMITRIPTYLINE
     Indication: SPINAL CORD OPERATION
     Route: 065

REACTIONS (2)
  - Hypertension [Unknown]
  - Addison^s disease [Unknown]

NARRATIVE: CASE EVENT DATE: 2016
